FAERS Safety Report 8221325-8 (Version None)
Quarter: 2012Q1

REPORT INFORMATION
  Report Type: 
  Country: None (occurrence: None)
  Receive Date: 20120320
  Receipt Date: 20120314
  Transmission Date: 20120608
  Serious: Yes (Hospitalization, Other)
  Sender: FDA-Public Use
  Company Number: PHHY2012BR022727

PATIENT
  Sex: Female

DRUGS (8)
  1. DIAMICRON [Concomitant]
     Dosage: 30 MG, TWO TABLETS IN FASTING STATE
  2. EXELON [Suspect]
     Indication: DEMENTIA ALZHEIMER'S TYPE
     Dosage: 4.6 MG, (9MG/5CM2, 1 PATCH A DAY)
     Route: 062
  3. TERTRALINE [Concomitant]
     Indication: DEPRESSION
     Dosage: 1 DF, QD
  4. EXELON [Suspect]
     Dosage: 9.5 MG, (18MG/10CM2, 1 PATCH A DAY)
     Route: 062
  5. GALVUS [Concomitant]
     Indication: HYPERTENSION
     Dosage: 1 DF, TID
  6. CLONAZEPAM [Concomitant]
     Indication: SLEEP DISORDER
     Dosage: 1 DF, QD
  7. METFORMIN HCL [Concomitant]
     Indication: DIABETES MELLITUS
     Dosage: 1 DF, QD
  8. ENALAPRIL [Concomitant]
     Indication: BLOOD PRESSURE ABNORMAL
     Dosage: 1 DF, QD

REACTIONS (7)
  - SKIN ULCER [None]
  - URINARY TRACT INFECTION [None]
  - APATHY [None]
  - DYSSTASIA [None]
  - HYPERTENSION [None]
  - DIABETES MELLITUS [None]
  - INSOMNIA [None]
